FAERS Safety Report 16649025 (Version 1)
Quarter: 2019Q3

REPORT INFORMATION
  Report Type: Spontaneous
  Country: US (occurrence: US)
  Receive Date: 20190730
  Receipt Date: 20190730
  Transmission Date: 20191004
  Serious: Yes (Other)
  Sender: FDA-Public Use
  Company Number: US-PFIZER INC-2019322294

PATIENT

DRUGS (8)
  1. DEXILANT [Suspect]
     Active Substance: DEXLANSOPRAZOLE
  2. PREVACID [Suspect]
     Active Substance: LANSOPRAZOLE
  3. PROTONIX [Suspect]
     Active Substance: PANTOPRAZOLE SODIUM
  4. LANSOPRAZOLE. [Suspect]
     Active Substance: LANSOPRAZOLE
     Dosage: UNK
  5. TAGAMET HB [Concomitant]
     Active Substance: CIMETIDINE
  6. ZANTAC [Concomitant]
     Active Substance: RANITIDINE HYDROCHLORIDE
  7. NEXIUM [Suspect]
     Active Substance: ESOMEPRAZOLE MAGNESIUM
     Indication: GASTROOESOPHAGEAL REFLUX DISEASE
     Dosage: 20 MG, 1X/DAY
     Dates: start: 2015
  8. ZANTAC 150 (RANITIDINE HYDROCHLORIDE) [Concomitant]
     Active Substance: RANITIDINE HYDROCHLORIDE

REACTIONS (2)
  - Renal failure [Not Recovered/Not Resolved]
  - Myocardial infarction [Not Recovered/Not Resolved]
